FAERS Safety Report 10062955 (Version 1)
Quarter: 2014Q1

REPORT INFORMATION
  Report Type: Spontaneous
  Country: US (occurrence: None)
  Receive Date: 20140328
  Receipt Date: 20140328
  Transmission Date: 20141002
  Serious: Yes (Hospitalization)
  Sender: FDA-Public Use
  Company Number: PHEH2014US002901

PATIENT
  Sex: Male

DRUGS (1)
  1. AFINITOR [Suspect]
     Dates: start: 20131001, end: 20131015

REACTIONS (7)
  - Pneumonia legionella [None]
  - Feeling abnormal [None]
  - Memory impairment [None]
  - Weight decreased [None]
  - Asthenia [None]
  - Impaired driving ability [None]
  - Aphonia [None]
